FAERS Safety Report 9985004 (Version 1)
Quarter: 2014Q1

REPORT INFORMATION
  Report Type: Report from Study
  Country: US (occurrence: US)
  Receive Date: 20140307
  Receipt Date: 20140307
  Transmission Date: 20141002
  Serious: No
  Sender: FDA-Public Use
  Company Number: US-ABBVIE-14P-163-1186632-00

PATIENT
  Age: 52 Year
  Sex: Female

DRUGS (9)
  1. HUMIRA [Suspect]
     Indication: CROHN^S DISEASE
     Dates: start: 20131127, end: 20131127
  2. HUMIRA [Suspect]
     Dates: start: 20131211, end: 20131211
  3. AZATHIOPRINE [Concomitant]
     Indication: CROHN^S DISEASE
  4. BUDESONIDE [Concomitant]
     Indication: CROHN^S DISEASE
  5. URSODIOL [Concomitant]
     Indication: LIVER DISORDER
  6. ZOLOFT [Concomitant]
     Indication: ANXIETY
  7. B12 [Concomitant]
     Indication: PRODUCT USED FOR UNKNOWN INDICATION
  8. VAGIFEM [Concomitant]
     Indication: HORMONE REPLACEMENT THERAPY
  9. IRON [Concomitant]
     Indication: MINERAL SUPPLEMENTATION

REACTIONS (2)
  - Injection site erythema [Recovered/Resolved]
  - Injection site swelling [Recovered/Resolved]
